FAERS Safety Report 7278059-6 (Version None)
Quarter: 2011Q1

REPORT INFORMATION
  Report Type: 
  Country: None (occurrence: None)
  Receive Date: 20110207
  Receipt Date: 20110128
  Transmission Date: 20110831
  Serious: Yes (Other)
  Sender: FDA-Public Use
  Company Number: US-ROCHE-755186

PATIENT
  Sex: Female

DRUGS (13)
  1. DOCETAXEL [Suspect]
     Dosage: DOSAGE FORM: VIALS; DOSE LEVEL: 75 MG/M^2
     Route: 042
     Dates: start: 20090528
  2. PHENERGAN [Concomitant]
  3. TYLENOL-500 [Concomitant]
     Dates: start: 20090719, end: 20090724
  4. ZOFRAN [Concomitant]
     Dates: start: 20090719
  5. DOCETAXEL [Suspect]
     Dosage: NEW DOSE: -1 (60 MG/M^2 EVERY THREE WEEKS)
     Route: 042
     Dates: start: 20090806
  6. NEXIUM [Concomitant]
     Dates: start: 20090528
  7. MARIJUANA [Concomitant]
  8. BEVACIZUMAB [Suspect]
     Dosage: DOSAGE FORM: VIALS; DOSE LEVEL: 15 MG/KG
     Route: 042
     Dates: start: 20090528
  9. CARBOPLATIN [Suspect]
     Dosage: DOSAGE REDUCED; NEW DOSE: -1 (5 AUC EVERY THREE WEEKS)
     Route: 042
     Dates: start: 20090806
  10. MILK OF MAGNESIA TAB [Concomitant]
     Dosage: TDD:3000 (30 CC)
     Dates: start: 20090719, end: 20090724
  11. TRASTUZUMAB [Suspect]
     Dosage: DOSAGE FORM: VIALS, DOSE LEVEL: 6MG/KG
     Route: 042
     Dates: start: 20090528
  12. CARBOPLATIN [Suspect]
     Dosage: DOSAGE FORM: VIALS, DOSE LEVEL: 6 AUC
     Route: 042
     Dates: start: 20090528
  13. MIRALAX [Concomitant]
     Dates: start: 20090719, end: 20090724

REACTIONS (2)
  - PROCTITIS HERPES [None]
  - ABORTION INDUCED [None]
